FAERS Safety Report 22217880 (Version 1)
Quarter: 2023Q2

REPORT INFORMATION
  Report Type: Spontaneous
  Country: US (occurrence: None)
  Receive Date: 20230316
  Receipt Date: 20230316
  Transmission Date: 20230722
  Serious: Yes (Life-Threatening, Hospitalization)
  Sender: FDA-Public Use
  Company Number: None

PATIENT
  Age: 68 Year
  Sex: Male
  Weight: 102 kg

DRUGS (1)
  1. CARFILZOMIB [Suspect]
     Active Substance: CARFILZOMIB
     Indication: Plasma cell myeloma refractory
     Dosage: OTHER FREQUENCY : DAY 1, 2, 8, 9;?
     Route: 042
     Dates: start: 20221222, end: 20221229

REACTIONS (13)
  - Hypoxia [None]
  - Hypertension [None]
  - Infusion related reaction [None]
  - Vision blurred [None]
  - Fall [None]
  - Pneumonia bacterial [None]
  - Aspergillus infection [None]
  - Dysphagia [None]
  - Unresponsive to stimuli [None]
  - Vocal cord disorder [None]
  - Post procedural complication [None]
  - Hemiplegia [None]
  - Renal tubular necrosis [None]

NARRATIVE: CASE EVENT DATE: 20230102
